FAERS Safety Report 10229637 (Version 1)
Quarter: 2014Q2

REPORT INFORMATION
  Report Type: Spontaneous
  Country: ES (occurrence: ES)
  Receive Date: 20140611
  Receipt Date: 20140611
  Transmission Date: 20141212
  Serious: Yes (Other)
  Sender: FDA-Public Use
  Company Number: ES-ASTELLAS-2014EU007105

PATIENT
  Age: 46 Year
  Sex: Female

DRUGS (2)
  1. BETMIGA [Suspect]
     Indication: HYPERTONIC BLADDER
     Route: 048
     Dates: start: 20140521, end: 20140523
  2. OMEPRAZOL                          /00661201/ [Concomitant]
     Indication: PROPHYLAXIS
     Route: 048
     Dates: start: 20140521, end: 20140523

REACTIONS (1)
  - Convulsion [Recovered/Resolved]
